FAERS Safety Report 5163734-X (Version None)
Quarter: 2006Q4

REPORT INFORMATION
  Report Type: 
  Country: None (occurrence: None)
  Receive Date: 20061204
  Receipt Date: 20061019
  Transmission Date: 20070319
  Serious: Yes (Hospitalization)
  Sender: FDA-Public Use
  Company Number: DE-GLAXOSMITHKLINE-D0051244A

PATIENT
  Age: 31 Year
  Sex: Female
  Weight: 84 kg

DRUGS (1)
  1. QUILONUM RETARD [Suspect]
     Indication: MAJOR DEPRESSION
     Dosage: 450MG TWICE PER DAY
     Route: 048
     Dates: start: 20040701, end: 20060201

REACTIONS (1)
  - HYPERTRIGLYCERIDAEMIA [None]
